FAERS Safety Report 7076489-9 (Version None)
Quarter: 2010Q4

REPORT INFORMATION
  Report Type: 
  Country: None (occurrence: None)
  Receive Date: 20101029
  Receipt Date: 20101029
  Transmission Date: 20110411
  Serious: Yes (Hospitalization)
  Sender: FDA-Public Use
  Company Number: None

PATIENT
  Age: 76 Year
  Sex: Male

DRUGS (1)
  1. ULTIMATE PRO SUPPORT [Suspect]
     Indication: PROSTATIC DISORDER
     Dosage: 1 A DAY

REACTIONS (1)
  - HAEMORRHAGE [None]
